FAERS Safety Report 4324307-1 (Version None)
Quarter: 2004Q1

REPORT INFORMATION
  Report Type: 
  Country: None (occurrence: None)
  Receive Date: 20040326
  Receipt Date: 20040123
  Transmission Date: 20041129
  Serious: No
  Sender: FDA-Public Use
  Company Number: US-GLAXOSMITHKLINE-A0495033A

PATIENT
  Age: 73 Year
  Sex: Male

DRUGS (3)
  1. ADVAIR DISKUS 100/50 [Suspect]
     Dosage: 1PUFF TWICE PER DAY
     Route: 055
     Dates: start: 20040112, end: 20040114
  2. OXYGEN [Concomitant]
  3. ASPIRIN [Concomitant]

REACTIONS (3)
  - COUGH [None]
  - DYSPNOEA EXACERBATED [None]
  - HEART RATE INCREASED [None]
